FAERS Safety Report 20329098 (Version 2)
Quarter: 2022Q4

REPORT INFORMATION
  Report Type: Spontaneous
  Country: US (occurrence: US)
  Receive Date: 20220112
  Receipt Date: 20221005
  Transmission Date: 20230113
  Serious: No
  Sender: FDA-Public Use
  Company Number: US-INTRA-CELLULAR THERAPIES, INC.-2021ICT00445

PATIENT
  Age: 49 Year
  Sex: Female
  Weight: 102.04 kg

DRUGS (6)
  1. CAPLYTA [Suspect]
     Active Substance: LUMATEPERONE
     Indication: Bipolar disorder
     Dosage: 42 MG, 1X/DAY, AT NIGHT WITH FOOD
     Route: 048
  2. CAPLYTA [Suspect]
     Active Substance: LUMATEPERONE
     Indication: Bipolar I disorder
  3. LAMICTAL [Concomitant]
     Active Substance: LAMOTRIGINE
  4. GABAPENTIN [Concomitant]
     Active Substance: GABAPENTIN
     Dosage: UNK
     Dates: end: 202110
  5. VIIBRYD [Concomitant]
     Active Substance: VILAZODONE HYDROCHLORIDE
  6. WELLBUTRIN [Concomitant]
     Active Substance: BUPROPION HYDROCHLORIDE

REACTIONS (5)
  - Sleep paralysis [Recovering/Resolving]
  - Rapid eye movements sleep abnormal [Recovered/Resolved]
  - Hormone level abnormal [Unknown]
  - Off label use [Not Recovered/Not Resolved]
  - Vitamin B complex deficiency [Recovered/Resolved]

NARRATIVE: CASE EVENT DATE: 20210801
